FAERS Safety Report 8686224 (Version 2)
Quarter: 2012Q4

REPORT INFORMATION
  Report Type: 
  Country: US (occurrence: US)
  Receive Date: 20120726
  Receipt Date: 20121213
  Transmission Date: 20130627
  Serious: No
  Sender: FDA-Public Use
  Company Number: US-ASTRAZENECA-2011SE60502

PATIENT
  Age: 48 Year
  Sex: Female
  Weight: 56.7 kg

DRUGS (2)
  1. SEROQUEL XR [Suspect]
     Indication: BIPOLAR DISORDER
     Route: 048
     Dates: start: 2009
  2. XANAX [Concomitant]
     Indication: ANXIETY

REACTIONS (5)
  - Weight increased [Unknown]
  - Drug withdrawal syndrome [Unknown]
  - Restless legs syndrome [Unknown]
  - Muscle spasms [Unknown]
  - Drug dose omission [Unknown]
